FAERS Safety Report 23270080 (Version 1)
Quarter: 2023Q4

REPORT INFORMATION
  Report Type: Spontaneous
  Country: MX (occurrence: None)
  Receive Date: 20231207
  Receipt Date: 20231207
  Transmission Date: 20240110
  Serious: Yes (Hospitalization)
  Sender: FDA-Public Use
  Company Number: MX-ROCHE-3470466

PATIENT
  Sex: Male
  Weight: 45 kg

DRUGS (1)
  1. PULMOZYME [Suspect]
     Active Substance: DORNASE ALFA
     Indication: Cystic fibrosis
     Dosage: 1 AMPOULE IN THE MORNING AND 1 AT NIGHT VIA NEBULIZATION
     Dates: start: 2007

REACTIONS (5)
  - Oxygen saturation decreased [Recovered/Resolved]
  - Cystic fibrosis [Recovered/Resolved]
  - Productive cough [Recovered/Resolved]
  - Off label use [Unknown]
  - Off label use [Unknown]

NARRATIVE: CASE EVENT DATE: 20070101
